FAERS Safety Report 13104012 (Version 6)
Quarter: 2018Q4

REPORT INFORMATION
  Report Type: Spontaneous
  Country: US (occurrence: US)
  Receive Date: 20170111
  Receipt Date: 20181101
  Transmission Date: 20190204
  Serious: Yes (Congenital Anomaly, Other)
  Sender: FDA-Public Use
  Company Number: PHEH2016US034221

PATIENT
  Sex: Female

DRUGS (2)
  1. ZOFRAN [Suspect]
     Active Substance: ONDANSETRON HYDROCHLORIDE
     Indication: FOETAL EXPOSURE DURING PREGNANCY
     Dosage: MOTHER^S DOSE: 02 DF, AS NEEDED (PRN)
     Route: 064
  2. ONDANSETRON AUROBINDO [Suspect]
     Active Substance: ONDANSETRON HYDROCHLORIDE
     Indication: FOETAL EXPOSURE DURING PREGNANCY
     Dosage: MOTHER^S DOSE: 02 DF, AS NEEDED (PRN)
     Route: 064

REACTIONS (40)
  - Otorrhoea [Unknown]
  - Urine odour abnormal [Unknown]
  - Laevocardia [Unknown]
  - Skin hypopigmentation [Unknown]
  - Abdominal pain upper [Unknown]
  - Aortic dilatation [Unknown]
  - Otitis media acute [Unknown]
  - Middle ear effusion [Unknown]
  - Cardiac murmur [Unknown]
  - Adenoidal hypertrophy [Unknown]
  - Back injury [Unknown]
  - Atrial septal defect [Unknown]
  - Left-to-right cardiac shunt [Unknown]
  - Foetal exposure during pregnancy [Unknown]
  - Eustachian tube dysfunction [Unknown]
  - Mastoiditis [Unknown]
  - Acute sinusitis [Unknown]
  - Dehydration [Unknown]
  - Abdominal pain [Unknown]
  - Subperiosteal abscess [Unknown]
  - Haematochezia [Unknown]
  - Ear infection [Unknown]
  - Eczema [Unknown]
  - Ear pain [Unknown]
  - Diarrhoea [Unknown]
  - Conjunctivitis [Unknown]
  - Cough [Unknown]
  - Behavioural insomnia of childhood [Unknown]
  - Back pain [Unknown]
  - Snoring [Unknown]
  - Sleep apnoea syndrome [Unknown]
  - Tonsillar hypertrophy [Unknown]
  - Pyrexia [Unknown]
  - Dermatitis diaper [Unknown]
  - Rhinitis [Unknown]
  - Enteritis [Unknown]
  - Otitis media chronic [Unknown]
  - Foreign body in respiratory tract [Unknown]
  - Upper respiratory tract infection [Unknown]
  - Arthralgia [Unknown]
